FAERS Safety Report 4428864-6 (Version None)
Quarter: 2004Q3

REPORT INFORMATION
  Report Type: 
  Country: None (occurrence: None)
  Receive Date: 20040813
  Receipt Date: 20040803
  Transmission Date: 20050211
  Serious: Yes (Other)
  Sender: FDA-Public Use
  Company Number: GBWYE962610AUG04

PATIENT
  Sex: Male

DRUGS (3)
  1. MINOCIN [Suspect]
     Indication: ACNE
     Dosage: 100MG ORAL
     Route: 048
     Dates: start: 20030220, end: 20031127
  2. MICRONOR [Concomitant]
  3. FLUOXETINE [Concomitant]

REACTIONS (4)
  - CAESAREAN SECTION [None]
  - CONGENITAL ANOMALY [None]
  - MATERNAL DRUGS AFFECTING FOETUS [None]
  - TALIPES [None]
